FAERS Safety Report 6241827-3 (Version None)
Quarter: 2009Q2

REPORT INFORMATION
  Report Type: 
  Country: None (occurrence: None)
  Receive Date: 20090617
  Receipt Date: 20071130
  Transmission Date: 20091009
  Serious: No
  Sender: FDA-Public Use
  Company Number: 269876

PATIENT
  Sex: Female

DRUGS (3)
  1. LEVEMIR [Suspect]
     Indication: INSULIN-REQUIRING TYPE 2 DIABETES MELLITUS
     Dosage: 20 IU, QD, SUBCUTANEOUS ; 70 IU, QD, SUBCUTANEOUS ; 25 IU, BID, SUBCUTANEOUS
     Route: 058
     Dates: start: 20070501
  2. NOVOLOG [Concomitant]
  3. BYETTA (EXENATIDE, EXENATIDE) [Concomitant]

REACTIONS (1)
  - INJECTION SITE HAEMATOMA [None]
